FAERS Safety Report 21904361 (Version 2)
Quarter: 2023Q1

REPORT INFORMATION
  Report Type: Report from Study
  Country: CN (occurrence: None)
  Receive Date: 20230124
  Receipt Date: 20230317
  Transmission Date: 20230418
  Serious: Yes (Other)
  Sender: FDA-Public Use
  Company Number: 2023A012109

PATIENT
  Age: 604 Month
  Sex: Female

DRUGS (5)
  1. OLAPARIB [Suspect]
     Active Substance: OLAPARIB
     Indication: Ovarian epithelial cancer
     Dosage: 300 MG
     Route: 048
     Dates: start: 20220515, end: 202206
  2. OLAPARIB [Suspect]
     Active Substance: OLAPARIB
     Indication: Ovarian epithelial cancer
     Dosage: 300 MG
     Route: 048
     Dates: start: 202206, end: 20220929
  3. OLAPARIB [Suspect]
     Active Substance: OLAPARIB
     Indication: Ovarian epithelial cancer
     Dosage: 00 MG
     Route: 048
     Dates: start: 20220930, end: 20221014
  4. OLAPARIB [Suspect]
     Active Substance: OLAPARIB
     Indication: Ovarian epithelial cancer
     Dosage: 300 MG
     Route: 048
     Dates: start: 20221015
  5. THYMALFASIN FOR INJECTION [Concomitant]
     Indication: Immunisation
     Dosage: OTHER
     Route: 065
     Dates: start: 20220916

REACTIONS (1)
  - Myelosuppression [Recovered/Resolved]

NARRATIVE: CASE EVENT DATE: 20230106
